FAERS Safety Report 11680634 (Version 2)
Quarter: 2015Q4

REPORT INFORMATION
  Report Type: Spontaneous
  Country: US (occurrence: US)
  Receive Date: 20151027
  Receipt Date: 20151104
  Transmission Date: 20160304
  Serious: No
  Sender: FDA-Public Use
  Company Number: US-ELI_LILLY_AND_COMPANY-US201011002338

PATIENT
  Age: 86 Year
  Sex: Male

DRUGS (29)
  1. FORTEO [Suspect]
     Active Substance: TERIPARATIDE
     Indication: OSTEOPOROSIS
     Dosage: 20 UG, DAILY (1/D)
     Route: 065
     Dates: start: 20101016
  2. AVODART [Concomitant]
     Active Substance: DUTASTERIDE
  3. OXYBUTIN [Concomitant]
     Active Substance: OXYBUTYNIN
  4. ARICEPT [Concomitant]
     Active Substance: DONEPEZIL HYDROCHLORIDE
  5. SPIRIVA [Concomitant]
     Active Substance: TIOTROPIUM BROMIDE MONOHYDRATE
  6. MELATONIN [Concomitant]
     Active Substance: MELATONIN
  7. OMEGA 3 FISH OIL [Concomitant]
     Active Substance: FISH OIL\OMEGA-3 FATTY ACIDS
  8. L-LYSINE [Concomitant]
     Active Substance: LYSINE
  9. FORTEO [Suspect]
     Active Substance: TERIPARATIDE
     Dosage: 20 UG, DAILY (1/D)
     Route: 065
  10. BABY ASPIRIN [Concomitant]
     Active Substance: ASPIRIN
  11. FORTEO [Suspect]
     Active Substance: TERIPARATIDE
     Dosage: 20 UG, DAILY (1/D)
     Route: 065
  12. FORTEO [Suspect]
     Active Substance: TERIPARATIDE
     Dosage: 20 UG, QD
     Route: 065
  13. OXYGEN. [Concomitant]
     Active Substance: OXYGEN
     Dosage: UNK, EACH EVENING
  14. METAMUCIL [Concomitant]
     Active Substance: PLANTAGO SEED
  15. ALPRAZOLAM. [Concomitant]
     Active Substance: ALPRAZOLAM
  16. TESSALON [Concomitant]
     Active Substance: BENZONATATE
  17. MUCINEX [Concomitant]
     Active Substance: GUAIFENESIN
  18. TOPROL XL [Concomitant]
     Active Substance: METOPROLOL SUCCINATE
  19. POTASSIUM [Concomitant]
     Active Substance: POTASSIUM
  20. LIPITOR [Concomitant]
     Active Substance: ATORVASTATIN CALCIUM
  21. LASIX [Concomitant]
     Active Substance: FUROSEMIDE
  22. COENZYME Q10 [Concomitant]
     Active Substance: UBIDECARENONE
  23. UROXATRAL [Concomitant]
     Active Substance: ALFUZOSIN HYDROCHLORIDE
  24. XOPENEX [Concomitant]
     Active Substance: LEVALBUTEROL HYDROCHLORIDE
  25. CALMAG D [Concomitant]
  26. MULTIVITAMIN [Concomitant]
     Active Substance: VITAMINS
  27. PRESERVISION LUTEIN EYE VITA.+MIN.SUP.SOFTG. [Concomitant]
  28. EVENING PRIMROSE OIL [Concomitant]
     Active Substance: EVENING PRIMROSE OIL
  29. AVASTIN [Concomitant]
     Active Substance: BEVACIZUMAB

REACTIONS (8)
  - Nerve injury [Unknown]
  - Injection site pain [Not Recovered/Not Resolved]
  - Muscle spasms [Recovered/Resolved]
  - Contusion [Not Recovered/Not Resolved]
  - Sleep disorder due to a general medical condition [Recovered/Resolved]
  - Injection site bruising [Unknown]
  - Pain in extremity [Unknown]
  - Cataract [Unknown]

NARRATIVE: CASE EVENT DATE: 20101103
